FAERS Safety Report 13739574 (Version 1)
Quarter: 2017Q3

REPORT INFORMATION
  Report Type: Spontaneous
  Country: BR (occurrence: BR)
  Receive Date: 20170710
  Receipt Date: 20170710
  Transmission Date: 20171127
  Serious: Yes (Other)
  Sender: FDA-Public Use
  Company Number: PHHY2013BR063868

PATIENT
  Sex: Female

DRUGS (2)
  1. HYDERGINE [Suspect]
     Active Substance: ERGOLOID MESYLATES
     Indication: OXYGEN THERAPY
     Dosage: 4.5 MG, DAILY
     Route: 048
     Dates: end: 201303
  2. HYDERGINE [Suspect]
     Active Substance: ERGOLOID MESYLATES
     Indication: OFF LABEL USE

REACTIONS (1)
  - Senile dementia [Not Recovered/Not Resolved]
